FAERS Safety Report 6372005-5 (Version None)
Quarter: 2009Q3

REPORT INFORMATION
  Report Type: 
  Country: None (occurrence: None)
  Receive Date: 20090917
  Receipt Date: 20090907
  Transmission Date: 20100115
  Serious: Yes (Other)
  Sender: FDA-Public Use
  Company Number: GXKR2009IE10009

PATIENT
  Age: 71 Year
  Sex: Male

DRUGS (5)
  1. CLARITHROMYCIN [Suspect]
     Indication: HELICOBACTER GASTRITIS
     Dosage: 1000 MG, DAILY, ORAL
     Route: 048
     Dates: start: 20090812, end: 20090819
  2. PROTIUM (PANTOPRAZOLE SODIUM) GASTRO-RESISTANT TABLET [Concomitant]
  3. AMOXICILLIN [Concomitant]
  4. BISODOL (BISMUTH ALUMINATE, CALCIUM CARBONATE, DIASTASE, MAGNESIUM CAR [Concomitant]
  5. CALCIUM CARBONATE [Concomitant]

REACTIONS (5)
  - GLOSSODYNIA [None]
  - LIP SWELLING [None]
  - OROPHARYNGEAL PAIN [None]
  - PARAESTHESIA [None]
  - SWOLLEN TONGUE [None]
